FAERS Safety Report 15363107 (Version 1)
Quarter: 2018Q3

REPORT INFORMATION
  Report Type: Report from Study
  Country: CA (occurrence: CA)
  Receive Date: 20180907
  Receipt Date: 20180907
  Transmission Date: 20181010
  Serious: Yes (Other)
  Sender: FDA-Public Use
  Company Number: CA-TEVA-2018-CA-950587

PATIENT
  Age: 41 Year
  Sex: Female

DRUGS (9)
  1. COPAXONE [Suspect]
     Active Substance: GLATIRAMER ACETATE
     Indication: MULTIPLE SCLEROSIS
     Route: 058
     Dates: start: 20170201, end: 20180716
  2. MAGNESIUM [Suspect]
     Active Substance: MAGNESIUM
     Route: 065
  3. VITAMIN D [Concomitant]
     Active Substance: CHOLECALCIFEROL
  4. YASMIN [Concomitant]
     Active Substance: DROSPIRENONE\ETHINYL ESTRADIOL
  5. OMEGA 3 COMPLEX [Concomitant]
  6. CALCIUM [Suspect]
     Active Substance: CALCIUM
     Route: 065
  7. AMITRIPTYLINE [Suspect]
     Active Substance: AMITRIPTYLINE
     Route: 065
  8. PROBACLAC [Concomitant]
  9. VITAMIN C [Concomitant]
     Active Substance: ASCORBIC ACID

REACTIONS (2)
  - Maternal exposure during pregnancy [Unknown]
  - Abortion spontaneous [Unknown]

NARRATIVE: CASE EVENT DATE: 20180827
